FAERS Safety Report 6749892-1 (Version None)
Quarter: 2010Q2

REPORT INFORMATION
  Report Type: 
  Country: None (occurrence: None)
  Receive Date: 20100601
  Receipt Date: 20100518
  Transmission Date: 20101027
  Serious: Yes (Hospitalization)
  Sender: FDA-Public Use
  Company Number: ES-ELI_LILLY_AND_COMPANY-ES201005005156

PATIENT
  Sex: Female
  Weight: 68 kg

DRUGS (7)
  1. FORTEO [Suspect]
     Indication: OSTEOPOROSIS
     Dosage: 20 UG, DAILY (1/D)
     Route: 058
     Dates: start: 20100324
  2. DACORTIN [Concomitant]
     Dosage: 5 MG, DAILY (1/D)
     Route: 048
  3. LEVOTHROID [Concomitant]
     Indication: HYPOTHYROIDISM
     Dosage: 100 MG, DAILY (1/D)
     Route: 048
  4. ARAVA [Concomitant]
     Dosage: 20 MG, DAILY (1/D)
     Route: 048
  5. ENALAPRIL [Concomitant]
     Indication: HYPERTENSION
     Dosage: 12.5 MG, 7 A DAY
     Route: 048
  6. OMEPRAZOLE [Concomitant]
     Dosage: 20 MG, DAILY (1/D)
     Route: 048
  7. NAPROSON [Concomitant]
     Dosage: 500 MG, DAILY (1/D)
     Route: 048

REACTIONS (1)
  - DEVICE BREAKAGE [None]
